FAERS Safety Report 9846352 (Version 2)
Quarter: 2014Q1

REPORT INFORMATION
  Report Type: Spontaneous
  Country: IT (occurrence: IT)
  Receive Date: 20140127
  Receipt Date: 20140306
  Transmission Date: 20141002
  Serious: Yes (Hospitalization)
  Sender: FDA-Public Use
  Company Number: IT-BRISTOL-MYERS SQUIBB COMPANY-20090957

PATIENT
  Age: 35 Year
  Sex: Female
  Weight: 48 kg

DRUGS (3)
  1. ERBITUX SOLN FOR INF 5MG/ML [Suspect]
     Indication: RECTAL CANCER
     Dosage: 35.7143MG/M2.
     Route: 042
     Dates: start: 20130416, end: 20130709
  2. IRINOTECAN [Concomitant]
     Indication: RECTAL CANCER
     Route: 042
     Dates: start: 20130416, end: 20130709
  3. 5-FLUOROURACIL [Concomitant]
     Indication: RECTAL CANCER
     Dosage: 600MG/M2-44 HOURS EVERY 14 DAYS
     Route: 042

REACTIONS (3)
  - Bronchitis chronic [Recovered/Resolved]
  - Respiratory failure [Recovered/Resolved]
  - Fungal infection [Recovered/Resolved]
